FAERS Safety Report 8875385 (Version 3)
Quarter: 2012Q4

REPORT INFORMATION
  Report Type: Report from Study
  Country: US (occurrence: US)
  Receive Date: 20121029
  Receipt Date: 20121211
  Transmission Date: 20130627
  Serious: Yes (Hospitalization)
  Sender: FDA-Public Use
  Company Number: US-SANOFI-AVENTIS-2012SA076243

PATIENT
  Age: 63 Year
  Sex: Male
  Weight: 83.9 kg

DRUGS (11)
  1. TAXOTERE [Suspect]
     Indication: NON-SMALL CELL LUNG CANCER STAGE IV
     Route: 041
     Dates: start: 20120126, end: 20120126
  2. TAXOTERE [Suspect]
     Indication: NON-SMALL CELL LUNG CANCER STAGE IV
     Route: 041
     Dates: start: 20120920, end: 20120920
  3. BLINDED THERAPY [Suspect]
     Indication: NON-SMALL CELL LUNG CANCER STAGE IV
     Route: 041
     Dates: start: 20120126, end: 20120126
  4. BLINDED THERAPY [Suspect]
     Indication: NON-SMALL CELL LUNG CANCER STAGE IV
     Route: 041
     Dates: start: 20120920, end: 20120920
  5. ADVAIR DISKUS [Concomitant]
     Dosage: Dosage: 250/50 ug
     Dates: start: 20091109
  6. SPIRIVA [Concomitant]
     Dates: start: 20100723
  7. SALBUTAMOL SULFATE [Concomitant]
     Dates: start: 20100723
  8. ZOLPIDEM TARTRATE [Concomitant]
     Dates: start: 20101006
  9. ALBUTEROL SULFATE [Concomitant]
     Dosage: Dosage: 2.5/3 DF
     Dates: start: 20120914
  10. FOLIC ACID [Concomitant]
     Dates: start: 20110602
  11. DEXAMETHASONE [Concomitant]
     Dates: start: 20120920

REACTIONS (2)
  - Chronic obstructive pulmonary disease [Recovered/Resolved]
  - Pneumonia [Recovered/Resolved]
